FAERS Safety Report 4866779-X (Version None)
Quarter: 2005Q4

REPORT INFORMATION
  Report Type: 
  Country: None (occurrence: None)
  Receive Date: 20051221
  Receipt Date: 20051209
  Transmission Date: 20060501
  Serious: Yes (Hospitalization)
  Sender: FDA-Public Use
  Company Number: SP-2005-002619

PATIENT
  Age: 76 Year
  Sex: Female
  Weight: 64 kg

DRUGS (1)
  1. VOTUM PLUS      (OLMESARTAN MEDOXOMIL/HCTZ) [Suspect]
     Indication: HYPERTENSION
     Dosage: 20/12.5 MG
     Dates: start: 20050701, end: 20050925

REACTIONS (3)
  - ALOPECIA [None]
  - HYPERTENSIVE CRISIS [None]
  - HYPONATRAEMIA [None]
